FAERS Safety Report 10202064 (Version 1)
Quarter: 2014Q2

REPORT INFORMATION
  Report Type: Spontaneous
  Country: US (occurrence: US)
  Receive Date: 20140528
  Receipt Date: 20140528
  Transmission Date: 20141212
  Serious: Yes (Hospitalization)
  Sender: FDA-Public Use
  Company Number: US-GLAXOSMITHKLINE-A1074219A

PATIENT
  Age: 53 Year
  Sex: Female

DRUGS (13)
  1. ADVAIR [Suspect]
     Indication: CHRONIC OBSTRUCTIVE PULMONARY DISEASE
     Dosage: 1PUFF TWICE PER DAY
     Route: 055
  2. SPIRIVA [Concomitant]
  3. COMBIVENT RESPIMAT [Concomitant]
  4. METFORMIN [Concomitant]
  5. GLYBURIDE [Concomitant]
  6. LIPITOR [Concomitant]
  7. FLECAINIDE [Concomitant]
  8. NEXIUM [Concomitant]
  9. CARDIZEM [Concomitant]
  10. AMBIEN [Concomitant]
  11. NORTRIPTYLINE [Concomitant]
  12. VICOPROFEN [Concomitant]
  13. PREDNISONE [Concomitant]

REACTIONS (3)
  - Pneumonia [Recovered/Resolved]
  - Sepsis [Recovered/Resolved]
  - Respiratory syncytial virus infection [Recovered/Resolved]
